FAERS Safety Report 5314373-9 (Version None)
Quarter: 2007Q2

REPORT INFORMATION
  Report Type: 
  Country: None (occurrence: None)
  Receive Date: 20070502
  Receipt Date: 20070425
  Transmission Date: 20071010
  Serious: Yes (Other)
  Sender: FDA-Public Use
  Company Number: PHEH2007US03965

PATIENT
  Age: 54 Year
  Sex: Female
  Weight: 49.886 kg

DRUGS (1)
  1. ZELNORM [Suspect]
     Indication: DIARRHOEA
     Dosage: 12 MG, BID
     Route: 048
     Dates: start: 20061201, end: 20070401

REACTIONS (5)
  - CARDIAC DISORDER [None]
  - CHEST PAIN [None]
  - DIARRHOEA [None]
  - VOMITING [None]
  - WEIGHT DECREASED [None]
